FAERS Safety Report 15605264 (Version 1)
Quarter: 2018Q4

REPORT INFORMATION
  Report Type: Spontaneous
  Country: HU (occurrence: HU)
  Receive Date: 20181112
  Receipt Date: 20181112
  Transmission Date: 20190205
  Serious: Yes (Other)
  Sender: FDA-Public Use
  Company Number: HU-ACCORD-091411

PATIENT
  Age: 42 Year
  Sex: Male

DRUGS (6)
  1. METHOTREXATE. [Suspect]
     Active Substance: METHOTREXATE
     Indication: PRODUCT USED FOR UNKNOWN INDICATION
     Route: 065
  2. INFLIXIMAB [Suspect]
     Active Substance: INFLIXIMAB
     Indication: GRANULOMATOSIS WITH POLYANGIITIS
     Dosage: LYOPHILIZED POWDER
     Route: 042
     Dates: start: 20100401
  3. CYCLOPHOSPHAMIDE/CYCLOPHOSPHAMIDE MONOHYDRATE [Suspect]
     Active Substance: CYCLOPHOSPHAMIDE
     Indication: GRANULOMATOSIS WITH POLYANGIITIS
     Route: 065
  4. LAMIVUDINE. [Suspect]
     Active Substance: LAMIVUDINE
     Indication: PROPHYLAXIS
     Route: 065
  5. ENTECAVIR. [Suspect]
     Active Substance: ENTECAVIR
     Indication: HEPATITIS B
     Route: 065
  6. AZATHIOPRINE. [Suspect]
     Active Substance: AZATHIOPRINE
     Indication: GRANULOMATOSIS WITH POLYANGIITIS
     Route: 065
     Dates: start: 2009

REACTIONS (11)
  - Hepatic enzyme increased [Unknown]
  - Pneumonia influenzal [Unknown]
  - Hepatitis B [Unknown]
  - Episcleritis [Unknown]
  - Testicular atrophy [Unknown]
  - Osteoporosis [Unknown]
  - Granulomatosis with polyangiitis [Unknown]
  - Therapy non-responder [Unknown]
  - Benign prostatic hyperplasia [Unknown]
  - Disease recurrence [Unknown]
  - Vasculitis [Unknown]

NARRATIVE: CASE EVENT DATE: 2009
